FAERS Safety Report 5858464-2 (Version None)
Quarter: 2008Q3

REPORT INFORMATION
  Report Type: 
  Country: None (occurrence: None)
  Receive Date: 20080826
  Receipt Date: 20080820
  Transmission Date: 20090109
  Serious: Yes (Hospitalization)
  Sender: FDA-Public Use
  Company Number: FR-PFIZER INC-2008070099

PATIENT
  Sex: Female

DRUGS (3)
  1. ZOLOFT [Suspect]
     Dosage: TEXT:2 DF DAILY EVERY DAY TDD:2 DF
     Route: 048
  2. LEVOTHYROXINE SODIUM [Concomitant]
  3. PRAZEPAM [Concomitant]

REACTIONS (1)
  - MIXED LIVER INJURY [None]
